FAERS Safety Report 5904094-3 (Version None)
Quarter: 2008Q3

REPORT INFORMATION
  Report Type: 
  Country: None (occurrence: None)
  Receive Date: 20080930
  Receipt Date: 20080918
  Transmission Date: 20090109
  Serious: Yes (Other)
  Sender: FDA-Public Use
  Company Number: US-JNJCH-2008024142

PATIENT
  Age: 52 Year
  Sex: Female
  Weight: 52.2 kg

DRUGS (1)
  1. BENADRYL [Suspect]
     Indication: ARTHROPOD STING
     Dosage: TEXT:TWO TABLETS EVERY FOUR HOURS
     Route: 048

REACTIONS (4)
  - DIZZINESS [None]
  - OFF LABEL USE [None]
  - OVERDOSE [None]
  - VOMITING [None]
